FAERS Safety Report 6107489-0 (Version None)
Quarter: 2009Q1

REPORT INFORMATION
  Report Type: 
  Country: None (occurrence: None)
  Receive Date: 20090309
  Receipt Date: 20090226
  Transmission Date: 20090719
  Serious: Yes (Death, Hospitalization)
  Sender: FDA-Public Use
  Company Number: ES-PFIZER INC-2005165766

PATIENT

DRUGS (1)
  1. SUNITINIB MALATE [Suspect]
     Indication: METASTATIC RENAL CELL CARCINOMA
     Dosage: 50 MG, 1X/DAY
     Dates: start: 20051114, end: 20051202

REACTIONS (5)
  - DISEASE PROGRESSION [None]
  - METASTATIC RENAL CELL CARCINOMA [None]
  - PNEUMONIA [None]
  - RESPIRATORY FAILURE [None]
  - STOMATITIS [None]
